FAERS Safety Report 23890233 (Version 2)
Quarter: 2024Q2

REPORT INFORMATION
  Report Type: Spontaneous
  Country: ES (occurrence: None)
  Receive Date: 20240523
  Receipt Date: 20240611
  Transmission Date: 20240715
  Serious: Yes (Hospitalization)
  Sender: FDA-Public Use
  Company Number: 2024A119342

PATIENT
  Age: 54 Year
  Sex: Male

DRUGS (8)
  1. OMEPRAZOLE [Suspect]
     Active Substance: DONEPEZIL HYDROCHLORIDE\OMEPRAZOLE\OMEPRAZOLE MAGNESIUM
  2. PREDNISONE [Suspect]
     Active Substance: PREDNISONE
  3. ROSUVASTATIN [Suspect]
     Active Substance: ROSUVASTATIN
  4. METHOTREXATE [Suspect]
     Active Substance: METHOTREXATE
  5. FOLIC ACID [Suspect]
     Active Substance: FOLIC ACID
  6. METFORMIN [Suspect]
     Active Substance: METFORMIN HYDROCHLORIDE
  7. VALSARTAN [Suspect]
     Active Substance: VALSARTAN
  8. RITUXIMAB [Suspect]
     Active Substance: RITUXIMAB

REACTIONS (2)
  - Hepatitis E [Recovered/Resolved]
  - Pancreatitis [Recovered/Resolved]
